FAERS Safety Report 10476786 (Version 1)
Quarter: 2014Q3

REPORT INFORMATION
  Report Type: Spontaneous
  Country: JP (occurrence: JP)
  Receive Date: 20140925
  Receipt Date: 20140925
  Transmission Date: 20150326
  Serious: No
  Sender: FDA-Public Use
  Company Number: JP-LUNDBECK-DKLU1097900

PATIENT
  Age: 14 Year
  Sex: Female

DRUGS (4)
  1. LEVETIRACETAM. [Suspect]
     Active Substance: LEVETIRACETAM
     Indication: CONVULSION
     Route: 048
  2. LAMOTRIGINE. [Suspect]
     Active Substance: LAMOTRIGINE
     Indication: CONVULSION
     Route: 048
  3. ZONISAMIDE. [Suspect]
     Active Substance: ZONISAMIDE
     Indication: CONVULSION
     Route: 048
  4. MYSTAN [Suspect]
     Active Substance: CLOBAZAM
     Indication: CONVULSION
     Route: 048

REACTIONS (1)
  - Somnolence [Unknown]
